FAERS Safety Report 10021802 (Version 1)
Quarter: 2014Q1

REPORT INFORMATION
  Report Type: Report from Study
  Country: US (occurrence: US)
  Receive Date: 20140319
  Receipt Date: 20140319
  Transmission Date: 20141002
  Serious: Yes (Hospitalization, Other)
  Sender: FDA-Public Use
  Company Number: US-JNJFOC-20140307715

PATIENT
  Age: 42 Year
  Sex: Male

DRUGS (2)
  1. INVEGA SUSTENNA [Suspect]
     Indication: SCHIZOPHRENIA, PARANOID TYPE
     Route: 030
  2. DEPAKOTE [Concomitant]
     Route: 065
     Dates: start: 201402

REACTIONS (4)
  - Antisocial behaviour [Not Recovered/Not Resolved]
  - Abnormal behaviour [Unknown]
  - Hallucination, auditory [Not Recovered/Not Resolved]
  - Drug dose omission [Not Recovered/Not Resolved]
